FAERS Safety Report 15618350 (Version 6)
Quarter: 2019Q1

REPORT INFORMATION
  Report Type: Spontaneous
  Country: US (occurrence: US)
  Receive Date: 20181114
  Receipt Date: 20190116
  Transmission Date: 20190417
  Serious: No
  Sender: FDA-Public Use
  Company Number: US-PFIZER INC-2018459523

PATIENT
  Age: 69 Year
  Sex: Male
  Weight: 106 kg

DRUGS (4)
  1. TRAMADOL. [Concomitant]
     Active Substance: TRAMADOL
     Dosage: UNK
  2. SUTENT [Suspect]
     Active Substance: SUNITINIB MALATE
     Indication: RENAL CELL CARCINOMA
     Dosage: 50 MG, CYCLIC (DAYS 1-28 EVERY 42 DAYS / 28 DAYS ON/14 DAYS OFF)
     Route: 048
     Dates: start: 20181023
  3. SUTENT [Suspect]
     Active Substance: SUNITINIB MALATE
     Dosage: UNK (TWO WEEKS ON AND TWO WEEKS OFF)
  4. FLOMAX [Concomitant]
     Active Substance: TAMSULOSIN HYDROCHLORIDE
     Dosage: UNK

REACTIONS (20)
  - Dysgeusia [Recovering/Resolving]
  - Thyroid hormones increased [Unknown]
  - Overweight [Recovered/Resolved]
  - Neoplasm progression [Recovered/Resolved]
  - Loss of personal independence in daily activities [Recovered/Resolved]
  - Abdominal pain [Recovered/Resolved]
  - Constipation [Recovered/Resolved]
  - Blood creatinine increased [Recovered/Resolved]
  - Decreased appetite [Recovering/Resolving]
  - Pain [Recovering/Resolving]
  - Dry mouth [Recovered/Resolved]
  - Skin fissures [Not Recovered/Not Resolved]
  - Skin exfoliation [Not Recovered/Not Resolved]
  - Fatigue [Recovered/Resolved]
  - Glomerular filtration rate increased [Recovered/Resolved]
  - Pain in extremity [Recovered/Resolved]
  - Blood pressure increased [Recovered/Resolved]
  - Ageusia [Recovering/Resolving]
  - Dizziness [Recovered/Resolved]
  - Rash [Recovered/Resolved]

NARRATIVE: CASE EVENT DATE: 2018
